FAERS Safety Report 4779752-7 (Version None)
Quarter: 2005Q3

REPORT INFORMATION
  Report Type: 
  Country: None (occurrence: None)
  Receive Date: 20050914
  Receipt Date: 20040908
  Transmission Date: 20060218
  Serious: Yes (Other)
  Sender: FDA-Public Use
  Company Number: 163-20785-04070099

PATIENT
  Age: 81 Year
  Sex: Male

DRUGS (11)
  1. THALOMID [Suspect]
     Indication: MULTIPLE MYELOMA
     Dosage: 200 MG, QHS, ORAL
     Route: 048
     Dates: start: 20030507
  2. TERAZOSIN (TERAZOSIN) (CAPSULES) [Concomitant]
  3. LOVASTATIN (LOVASTATIN) (TABLETS) [Concomitant]
  4. PROCRIT [Concomitant]
  5. PROTONIX (PANTOPRAZOLE SODIUM) (TABLETS) [Concomitant]
  6. FOLIC ACID (FOLIC ACID) (TABLETS) [Concomitant]
  7. VITAMIN B6 (PYRIDOXINE) (TABLETS) [Concomitant]
  8. PANTOPRAZOLE SODIUM [Concomitant]
  9. QUAR (BECLOMETASONE DIPROPIONATE) [Concomitant]
  10. ALBUTEROL [Concomitant]
  11. AREDIA [Concomitant]

REACTIONS (1)
  - DEEP VEIN THROMBOSIS [None]
